FAERS Safety Report 17727417 (Version 1)
Quarter: 2020Q2

REPORT INFORMATION
  Report Type: Spontaneous
  Country: US (occurrence: US)
  Receive Date: 20200429
  Receipt Date: 20200429
  Transmission Date: 20200714
  Serious: Yes (Hospitalization)
  Sender: FDA-Public Use
  Company Number: None

PATIENT
  Age: 29 Year
  Sex: Male
  Weight: 98 kg

DRUGS (1)
  1. VARENICLINE (VARENICLINE 1MG TAB) [Suspect]
     Active Substance: VARENICLINE
     Route: 048
     Dates: start: 20191201, end: 20200326

REACTIONS (1)
  - Pulmonary embolism [None]

NARRATIVE: CASE EVENT DATE: 20200325
